FAERS Safety Report 4751969-7 (Version None)
Quarter: 2005Q3

REPORT INFORMATION
  Report Type: 
  Country: None (occurrence: None)
  Receive Date: 20050824
  Receipt Date: 20050817
  Transmission Date: 20060218
  Serious: Yes (Hospitalization)
  Sender: FDA-Public Use
  Company Number: FR-MERCK-0508FRA00024

PATIENT
  Sex: Female

DRUGS (3)
  1. NOROXIN [Suspect]
     Indication: URINARY TRACT INFECTION
     Route: 048
     Dates: start: 20050101
  2. FERROUS SULFATE [Suspect]
     Route: 048
     Dates: start: 20050101
  3. ACETAMINOPHEN AND CAFFEINE AND PROPOXYPHENE HYDROCHLORIDE [Suspect]
     Route: 048
     Dates: start: 20050101

REACTIONS (4)
  - BRADYCARDIA [None]
  - DRUG EXPOSURE VIA BREAST MILK [None]
  - TACHYCARDIA [None]
  - VOMITING [None]
